FAERS Safety Report 7270796-2 (Version None)
Quarter: 2011Q1

REPORT INFORMATION
  Report Type: 
  Country: None (occurrence: None)
  Receive Date: 20110202
  Receipt Date: 20110124
  Transmission Date: 20110831
  Serious: Yes (Hospitalization)
  Sender: FDA-Public Use
  Company Number: US-ASTRAZENECA-2011SE04061

PATIENT
  Age: 25 Year
  Sex: Male
  Weight: 83.9 kg

DRUGS (6)
  1. SEROQUEL XR [Suspect]
     Indication: MOOD ALTERED
     Route: 048
     Dates: start: 20080101, end: 20110123
  2. VISTERIL [Concomitant]
     Dosage: 25 MG THREE TIMES A DAY, AS NEEDED
     Route: 048
  3. ZOLOFT [Concomitant]
     Indication: DEPRESSION
     Route: 048
  4. HALDOL [Suspect]
     Route: 048
  5. TEGRETOL [Concomitant]
     Route: 048
  6. SEROQUEL XR [Suspect]
     Indication: SLEEP DISORDER
     Route: 048
     Dates: start: 20080101, end: 20110123

REACTIONS (3)
  - APPENDICECTOMY [None]
  - DRUG DOSE OMISSION [None]
  - CLOSTRIDIAL INFECTION [None]
